FAERS Safety Report 13038406 (Version 1)
Quarter: 2016Q4

REPORT INFORMATION
  Report Type: Spontaneous
  Country: US (occurrence: US)
  Receive Date: 20161219
  Receipt Date: 20161219
  Transmission Date: 20170207
  Serious: No
  Sender: FDA-Public Use
  Company Number: US-ASTRAZENECA-2010BM13097

PATIENT
  Age: 64 Year
  Sex: Female
  Weight: 81.6 kg

DRUGS (5)
  1. INSULIN [Concomitant]
     Active Substance: INSULIN NOS
  2. FARXIGA [Suspect]
     Active Substance: DAPAGLIFLOZIN PROPANEDIOL
     Indication: SUPPLEMENTATION THERAPY
     Route: 048
     Dates: start: 2015, end: 2016
  3. LANTUS [Concomitant]
     Active Substance: INSULIN GLARGINE
     Dosage: UNK
  4. SYMLIN [Suspect]
     Active Substance: PRAMLINTIDE ACETATE
     Indication: TYPE 1 DIABETES MELLITUS
     Dosage: SYMLIN (PRAMLINTIDE ACETATE) INJECTION
     Route: 058
     Dates: start: 2007
  5. NOVOLOG [Concomitant]
     Active Substance: INSULIN ASPART
     Dosage: UNK

REACTIONS (6)
  - Blood glucose decreased [Unknown]
  - Drug ineffective [Unknown]
  - Nausea [Unknown]
  - Product use issue [Recovered/Resolved]
  - Product use issue [Unknown]
  - Off label use [Recovered/Resolved]

NARRATIVE: CASE EVENT DATE: 2015
